FAERS Safety Report 4277347-5 (Version None)
Quarter: 2004Q1

REPORT INFORMATION
  Report Type: 
  Country: None (occurrence: None)
  Receive Date: 20040121
  Receipt Date: 20040113
  Transmission Date: 20041129
  Serious: Yes (Other)
  Sender: FDA-Public Use
  Company Number: US-JNJFOC-20030905144

PATIENT
  Age: 37 Year
  Sex: Female

DRUGS (4)
  1. REMICADE [Suspect]
     Indication: JUVENILE ARTHRITIS
     Dosage: 300 MG, 1 IN 8 WEEK, INTRAVENOUS
     Route: 042
     Dates: start: 20010101
  2. METHOTREXATE [Concomitant]
  3. VIOXX [Concomitant]
  4. PAIN MEDICATION (ANALGESICS) [Concomitant]

REACTIONS (1)
  - CERVIX CARCINOMA STAGE 0 [None]
